FAERS Safety Report 5758160-6 (Version None)
Quarter: 2008Q2

REPORT INFORMATION
  Report Type: 
  Country: None (occurrence: None)
  Receive Date: 20080602
  Receipt Date: 20080602
  Transmission Date: 20081010
  Serious: Yes (Hospitalization)
  Sender: FDA-Public Use
  Company Number: None

PATIENT
  Sex: Female
  Weight: 31.9 kg

DRUGS (8)
  1. CYTARABINE [Suspect]
     Dosage: 70 MG
  2. DEXAMETHASONE TAB [Suspect]
     Dosage: 188.5 MG
  3. METHOTREXATE [Suspect]
     Dosage: 12 MG
  4. PEG-L- ASPARAGINASE (K-H) [Suspect]
     Dosage: 2700 UNIT
  5. VINCRISTINE SULFATE [Suspect]
     Dosage: 6.4 MG
  6. DIFLUCAN [Concomitant]
  7. SEPTRA [Concomitant]
  8. ZANTAC [Concomitant]

REACTIONS (9)
  - CONVULSION [None]
  - EPISTAXIS [None]
  - HALLUCINATION [None]
  - HEADACHE [None]
  - HYPERHIDROSIS [None]
  - LETHARGY [None]
  - REVERSIBLE POSTERIOR LEUKOENCEPHALOPATHY SYNDROME [None]
  - UNRESPONSIVE TO STIMULI [None]
  - VOMITING [None]
